FAERS Safety Report 20839540 (Version 1)
Quarter: 2022Q2

REPORT INFORMATION
  Report Type: Spontaneous
  Country: None (occurrence: US)
  Receive Date: 20220517
  Receipt Date: 20220517
  Transmission Date: 20220720
  Serious: No
  Sender: FDA-Public Use
  Company Number: US-B.Braun Medical Inc.-2128857

PATIENT
  Age: 82 Year
  Sex: Female

DRUGS (1)
  1. MAGNESIUM SULFATE IN DEXTROSE [Suspect]
     Active Substance: MAGNESIUM SULFATE

REACTIONS (1)
  - Night sweats [Unknown]
